FAERS Safety Report 6856747-0 (Version None)
Quarter: 2010Q3

REPORT INFORMATION
  Report Type: 
  Country: None (occurrence: None)
  Receive Date: 20100719
  Receipt Date: 20100623
  Transmission Date: 20110219
  Serious: Yes (Death)
  Sender: FDA-Public Use
  Company Number: US-BAXTER-2010BH007149

PATIENT
  Age: 43 Year
  Sex: Female

DRUGS (4)
  1. DIANEAL [Suspect]
     Indication: PERITONEAL DIALYSIS
     Route: 033
  2. EXTRANEAL [Suspect]
     Indication: PERITONEAL DIALYSIS
     Route: 033
  3. INSULIN [Concomitant]
     Indication: DIABETES MELLITUS
     Route: 033
  4. INSULIN [Concomitant]
     Route: 058

REACTIONS (1)
  - HYPOGLYCAEMIA [None]
